FAERS Safety Report 8771850 (Version 1)
Quarter: 2012Q4

REPORT INFORMATION
  Report Type: Report from Study
  Country: JP (occurrence: JP)
  Receive Date: 20120906
  Receipt Date: 20120906
  Transmission Date: 20130627
  Serious: Yes (Hospitalization)
  Sender: FDA-Public Use
  Company Number: JP-VERTEX PHARMACEUTICAL INC.-2012-020639

PATIENT
  Age: 55 Year
  Sex: Female

DRUGS (15)
  1. VX-950 [Suspect]
     Indication: HEPATITIS C
     Dosage: 1500 mg, qd
     Route: 048
     Dates: start: 20120224, end: 20120518
  2. REBETOL [Suspect]
     Indication: HEPATITIS C
     Dosage: 600 mg, qd
     Route: 048
     Dates: start: 20120224, end: 20120329
  3. REBETOL [Suspect]
     Dosage: 400 mg, qd
     Route: 048
     Dates: start: 20120330, end: 20120524
  4. REBETOL [Suspect]
     Dosage: 600 mg, qd
     Route: 048
     Dates: start: 20120525, end: 20120604
  5. PEGINTRON                          /01543001/ [Suspect]
     Indication: HEPATITIS C
     Dosage: 1.5 UNK, UNK
     Route: 058
     Dates: start: 20120224, end: 20120406
  6. PEGINTRON                          /01543001/ [Suspect]
     Dosage: 1.0 ?g/kg, UNK
     Route: 058
     Dates: start: 20120413, end: 20120511
  7. PEGINTRON                          /01543001/ [Suspect]
     Dosage: 1.5 UNK, UNK
     Route: 058
     Dates: start: 20120518, end: 20120525
  8. PEGINTRON                          /01543001/ [Suspect]
     Dosage: 1.0 ?g/kg, UNK
     Route: 058
     Dates: start: 20120601, end: 20120601
  9. THYRADIN-S [Concomitant]
     Dosage: 75 ?g, UNK
     Route: 048
  10. OPALMON [Concomitant]
     Dosage: 15 ?g, UNK
     Route: 048
  11. CALONAL [Concomitant]
     Dosage: 800 mg, qd
     Route: 048
     Dates: start: 20120224
  12. JUZENTAIHOTO [Concomitant]
     Dosage: 7.5 g, UNK
     Route: 048
     Dates: start: 20120224, end: 20120604
  13. PREDNISOLONE [Concomitant]
     Dosage: 5 mg, qd
     Route: 048
     Dates: end: 20120524
  14. TALION OD [Concomitant]
     Dosage: 20 mg, qd
     Route: 048
     Dates: end: 20120524
  15. LENDORMIN DAINIPPO [Concomitant]
     Dosage: 0.25 mg, qd
     Route: 048

REACTIONS (1)
  - Psychotic disorder [Unknown]
